FAERS Safety Report 10214753 (Version 1)
Quarter: 2014Q2

REPORT INFORMATION
  Report Type: Spontaneous
  Country: US (occurrence: US)
  Receive Date: 20140603
  Receipt Date: 20140603
  Transmission Date: 20141212
  Serious: No
  Sender: FDA-Public Use
  Company Number: US-009507513-1406USA001095

PATIENT
  Age: 7 Year
  Sex: Male
  Weight: 23.58 kg

DRUGS (1)
  1. CLARITIN CHEWABLE TABLETS [Suspect]
     Indication: SEASONAL ALLERGY
     Dosage: 1 TAB TWICE DAILY
     Route: 048
     Dates: start: 2014

REACTIONS (2)
  - Accidental overdose [Unknown]
  - No adverse event [Unknown]
